FAERS Safety Report 8121649-9 (Version None)
Quarter: 2012Q1

REPORT INFORMATION
  Report Type: 
  Country: None (occurrence: None)
  Receive Date: 20120208
  Receipt Date: 20120208
  Transmission Date: 20120608
  Serious: Yes (Disabling)
  Sender: FDA-Public Use
  Company Number: None

PATIENT
  Age: 28 Year
  Sex: Female
  Weight: 49.895 kg

DRUGS (2)
  1. FLUCONAZOLE [Suspect]
     Dosage: ONCE
     Route: 048
     Dates: start: 20091106, end: 20091106
  2. SAME [Concomitant]
     Dosage: SAME
     Route: 048
     Dates: start: 20100117, end: 20100117

REACTIONS (3)
  - BLADDER PAIN [None]
  - PAIN [None]
  - ABDOMINAL DISCOMFORT [None]
